FAERS Safety Report 8549840 (Version 5)
Quarter: 2017Q1

REPORT INFORMATION
  Report Type: Spontaneous
  Country: US (occurrence: US)
  Receive Date: 20120507
  Receipt Date: 20170309
  Transmission Date: 20170429
  Serious: Yes (Disabling, Other)
  Sender: FDA-Public Use
  Company Number: US-MERCK-1204USA04477

PATIENT
  Sex: Male
  Weight: 91.61 kg

DRUGS (1)
  1. PROPECIA [Suspect]
     Active Substance: FINASTERIDE
     Indication: ALOPECIA
     Dosage: 1 MG, UNK
     Route: 048
     Dates: start: 19981230, end: 20030119

REACTIONS (24)
  - Erectile dysfunction [Not Recovered/Not Resolved]
  - Hepatic enzyme increased [Unknown]
  - Androgen deficiency [Unknown]
  - Pollakiuria [Unknown]
  - Stress [Unknown]
  - Drug ineffective [Unknown]
  - Sexual dysfunction [Not Recovered/Not Resolved]
  - Colitis [Unknown]
  - Tri-iodothyronine increased [Unknown]
  - Libido decreased [Not Recovered/Not Resolved]
  - Ejaculation failure [Not Recovered/Not Resolved]
  - Bladder outlet obstruction [Unknown]
  - Anxiety [Not Recovered/Not Resolved]
  - Pain [Not Recovered/Not Resolved]
  - Cognitive disorder [Recovering/Resolving]
  - Hypothyroidism [Unknown]
  - Epididymitis [Unknown]
  - Secondary hypogonadism [Unknown]
  - Suicidal ideation [Unknown]
  - Depression [Not Recovered/Not Resolved]
  - Blood testosterone decreased [Recovering/Resolving]
  - Benign prostatic hyperplasia [Unknown]
  - Alopecia [Unknown]
  - Hypertonic bladder [Unknown]

NARRATIVE: CASE EVENT DATE: 1999
